FAERS Safety Report 22246223 (Version 2)
Quarter: 2023Q2

REPORT INFORMATION
  Report Type: Spontaneous
  Country: US (occurrence: US)
  Receive Date: 20230424
  Receipt Date: 20230427
  Transmission Date: 20230722
  Serious: Yes (Other)
  Sender: FDA-Public Use
  Company Number: US-PFIZER INC-PV202300073123

PATIENT
  Age: 61 Year
  Sex: Male

DRUGS (3)
  1. SUTENT [Suspect]
     Active Substance: SUNITINIB MALATE
     Dosage: UNK
  2. LENVIMA [Suspect]
     Active Substance: LENVATINIB
     Indication: Renal cancer
     Dosage: 18 MG, DAILY
     Route: 048
     Dates: start: 20191118
  3. AFINITOR [Concomitant]
     Active Substance: EVEROLIMUS
     Indication: Renal cancer
     Dosage: 5 MG, DAILY
     Route: 048
     Dates: end: 20200722

REACTIONS (5)
  - Diabetes mellitus [Unknown]
  - Sleep apnoea syndrome [Unknown]
  - Hypertension [Unknown]
  - Stomatitis [Unknown]
  - Weight decreased [Unknown]
